FAERS Safety Report 19040844 (Version 1)
Quarter: 2021Q1

REPORT INFORMATION
  Report Type: Spontaneous
  Country: US (occurrence: US)
  Receive Date: 20210323
  Receipt Date: 20210323
  Transmission Date: 20210420
  Serious: No
  Sender: FDA-Public Use
  Company Number: US-SA-2021SA094769

PATIENT
  Age: 48 Year
  Sex: Female

DRUGS (1)
  1. DUPIXENT [Suspect]
     Active Substance: DUPILUMAB
     Dosage: 300 MG
     Route: 058
     Dates: start: 202006, end: 202101

REACTIONS (3)
  - COVID-19 [Unknown]
  - Arthralgia [Unknown]
  - Sinusitis [Unknown]

NARRATIVE: CASE EVENT DATE: 202012
